FAERS Safety Report 14056226 (Version 2)
Quarter: 2017Q4

REPORT INFORMATION
  Report Type: Spontaneous
  Country: US (occurrence: US)
  Receive Date: 20171006
  Receipt Date: 20171123
  Transmission Date: 20180321
  Serious: No
  Sender: FDA-Public Use
  Company Number: US-BRISTOL-MYERS SQUIBB COMPANY-BMS-2017-089717

PATIENT
  Sex: Male

DRUGS (1)
  1. ABILIFY [Suspect]
     Active Substance: ARIPIPRAZOLE
     Indication: MAJOR DEPRESSION
     Dosage: 1 DF, UNK
     Route: 065

REACTIONS (7)
  - Obsessive-compulsive disorder [Unknown]
  - Anxiety [Unknown]
  - Pain [Unknown]
  - Gambling [Unknown]
  - Emotional distress [Unknown]
  - Injury [Unknown]
  - Economic problem [Unknown]
